FAERS Safety Report 11105728 (Version 1)
Quarter: 2015Q2

REPORT INFORMATION
  Report Type: Spontaneous
  Country: JP (occurrence: JP)
  Receive Date: 20150512
  Receipt Date: 20150512
  Transmission Date: 20150821
  Serious: Yes (Other)
  Sender: FDA-Public Use
  Company Number: JP-CIPLA LTD.-2015JP03659

PATIENT

DRUGS (2)
  1. IRINOTECAN [Suspect]
     Active Substance: IRINOTECAN
     Indication: BREAST CANCER METASTATIC
     Dosage: 100 MG/M2, AS A 30-MIN INTRAVENOUS INFUSION ON DAYS 1 AND 15 OF EACH CYCLE REPEATED EVERY 28 DAYS
  2. CAPEGARD [Suspect]
     Active Substance: CAPECITABINE
     Indication: BREAST CANCER METASTATIC
     Dosage: 1,657 MG/M2/DAY FOR 21 CONSECUTIVE DAYS, FOLLOWED BY 7 DAYS OF REST REPEATED EVERY 28 DAYS
     Route: 065

REACTIONS (1)
  - Photophobia [Recovered/Resolved]
